FAERS Safety Report 13740467 (Version 1)
Quarter: 2017Q3

REPORT INFORMATION
  Report Type: Spontaneous
  Country: BR (occurrence: BR)
  Receive Date: 20170711
  Receipt Date: 20170711
  Transmission Date: 20171127
  Serious: Yes (Other)
  Sender: FDA-Public Use
  Company Number: BR-TORRENT-00004036

PATIENT
  Sex: Male

DRUGS (1)
  1. RESPIDON [Suspect]
     Active Substance: RISPERIDONE

REACTIONS (4)
  - Fear [Not Recovered/Not Resolved]
  - Drug ineffective [Unknown]
  - Shock [Not Recovered/Not Resolved]
  - Anxiety [Not Recovered/Not Resolved]
